FAERS Safety Report 4827140-7 (Version None)
Quarter: 2005Q4

REPORT INFORMATION
  Report Type: 
  Country: None (occurrence: None)
  Receive Date: 20051014
  Receipt Date: 20050623
  Transmission Date: 20060501
  Serious: No
  Sender: FDA-Public Use
  Company Number: 2005SP001566

PATIENT
  Age: 51 Year
  Sex: Female
  Weight: 74.3899 kg

DRUGS (2)
  1. LUNESTA [Suspect]
     Dosage: 2 MG; ORAL, 3 MG; ORAL
     Route: 048
     Dates: start: 20050618, end: 20050619
  2. LUNESTA [Suspect]
     Dosage: 2 MG; ORAL, 3 MG; ORAL
     Route: 048
     Dates: start: 20050620

REACTIONS (3)
  - DRUG INEFFECTIVE [None]
  - DYSGEUSIA [None]
  - INSOMNIA [None]
